FAERS Safety Report 25656445 (Version 1)
Quarter: 2025Q3

REPORT INFORMATION
  Report Type: Report from Study
  Country: US (occurrence: US)
  Receive Date: 20250807
  Receipt Date: 20250807
  Transmission Date: 20251021
  Serious: Yes (Hospitalization, Other)
  Sender: ABBVIE
  Company Number: US-ABBVIE-5714889

PATIENT
  Age: 58 Year
  Sex: Female
  Weight: 104.32 kg

DRUGS (14)
  1. HUMIRA [Suspect]
     Active Substance: ADALIMUMAB
     Indication: Rheumatoid arthritis
     Dosage: FORM STRENGTH: 40 MG?CITRATE FREE
     Route: 058
     Dates: start: 20070101
  2. MELATONIN [Concomitant]
     Active Substance: MELATONIN
     Indication: Sleep disorder
  3. ATORVASTATIN [Concomitant]
     Active Substance: ATORVASTATIN
     Indication: Blood cholesterol
  4. TYLENOL PM [Concomitant]
     Active Substance: ACETAMINOPHEN\DIPHENHYDRAMINE
     Indication: Sleep disorder
  5. OMEPRAZOLE [Concomitant]
     Active Substance: OMEPRAZOLE
     Indication: Gastrointestinal disorder
  6. VITAMIN D2 [Concomitant]
     Active Substance: ERGOCALCIFEROL
     Indication: Vitamin supplementation
  7. BIOTIN [Concomitant]
     Active Substance: BIOTIN
     Indication: Hair disorder
  8. METHOTREXATE [Concomitant]
     Active Substance: METHOTREXATE
     Indication: Rheumatoid arthritis
  9. FOLIC ACID [Concomitant]
     Active Substance: FOLIC ACID
     Indication: Rheumatoid arthritis
  10. LASIX [Concomitant]
     Active Substance: FUROSEMIDE
     Indication: Blood pressure measurement
  11. ELIQUIS [Concomitant]
     Active Substance: APIXABAN
     Indication: Blood disorder
  12. AMITRIPTYLINE [Concomitant]
     Active Substance: AMITRIPTYLINE
     Indication: Migraine
  13. PLAQUENIL [Concomitant]
     Active Substance: HYDROXYCHLOROQUINE SULFATE
     Indication: Rheumatoid arthritis
  14. TOPIRAMATE [Concomitant]
     Active Substance: TOPIRAMATE
     Indication: Migraine

REACTIONS (16)
  - Hypertonic bladder [Not Recovered/Not Resolved]
  - Osteoarthritis [Recovered/Resolved]
  - Multiple allergies [Not Recovered/Not Resolved]
  - Hypotension [Recovered/Resolved]
  - Urinary tract infection [Recovered/Resolved]
  - Asthma [Recovered/Resolved]
  - Myocardial infarction [Recovered/Resolved]
  - Lip discolouration [Recovered/Resolved]
  - Arthralgia [Unknown]
  - Sinusitis [Recovered/Resolved]
  - Pain in extremity [Unknown]
  - Surgery [Not Recovered/Not Resolved]
  - Renal disorder [Unknown]
  - Arthritis [Recovered/Resolved]
  - Arthropathy [Recovered/Resolved]
  - Macular degeneration [Recovering/Resolving]

NARRATIVE: CASE EVENT DATE: 20240101
